FAERS Safety Report 13241240 (Version 1)
Quarter: 2017Q1

REPORT INFORMATION
  Report Type: Spontaneous
  Country: US (occurrence: US)
  Receive Date: 20170216
  Receipt Date: 20170216
  Transmission Date: 20170428
  Serious: Yes (Hospitalization)
  Sender: FDA-Public Use
  Company Number: US-INDIVIOR LIMITED-INDV-098844-2017

PATIENT
  Age: 36 Year
  Sex: Male

DRUGS (1)
  1. SUBOXONE [Suspect]
     Active Substance: BUPRENORPHINE HYDROCHLORIDE\NALOXONE HYDROCHLORIDE
     Indication: DRUG DEPENDENCE
     Dosage: 2 MG, UNK
     Route: 060
     Dates: start: 20170201, end: 20170207

REACTIONS (2)
  - Appendix disorder [Unknown]
  - Product preparation error [Recovered/Resolved]

NARRATIVE: CASE EVENT DATE: 20170201
